FAERS Safety Report 6820876-8 (Version None)
Quarter: 2010Q3

REPORT INFORMATION
  Report Type: 
  Country: None (occurrence: None)
  Receive Date: 20100707
  Receipt Date: 20070619
  Transmission Date: 20110219
  Serious: No
  Sender: FDA-Public Use
  Company Number: US-PFIZER INC-2007051363

PATIENT
  Sex: Female

DRUGS (2)
  1. ZOLOFT [Suspect]
     Indication: DEPRESSION
     Route: 048
     Dates: start: 20060101
  2. ACIPHEX [Interacting]
     Indication: GASTROOESOPHAGEAL REFLUX DISEASE

REACTIONS (3)
  - ANXIETY [None]
  - DRUG INTERACTION [None]
  - GASTROOESOPHAGEAL REFLUX DISEASE [None]
